FAERS Safety Report 8675522 (Version 2)
Quarter: 2013Q4

REPORT INFORMATION
  Report Type: Spontaneous
  Country: US (occurrence: US)
  Receive Date: 20120720
  Receipt Date: 20131101
  Transmission Date: 20140711
  Serious: No
  Sender: FDA-Public Use
  Company Number: US-009507513-1207USA004623

PATIENT
  Age: 22 Year
  Sex: Female
  Weight: 50.79 kg

DRUGS (1)
  1. NUVARING [Suspect]
     Indication: CONTRACEPTION
     Dosage: UNK, QM
     Route: 067
     Dates: start: 201107

REACTIONS (3)
  - Metrorrhagia [Unknown]
  - Menstruation delayed [Unknown]
  - Inappropriate schedule of drug administration [Unknown]
